FAERS Safety Report 6915528-X (Version None)
Quarter: 2010Q3

REPORT INFORMATION
  Report Type: 
  Country: None (occurrence: None)
  Receive Date: 20100804
  Receipt Date: 20100720
  Transmission Date: 20110219
  Serious: Yes (Death, Hospitalization)
  Sender: FDA-Public Use
  Company Number: 2010002818

PATIENT
  Sex: Female

DRUGS (11)
  1. ERLOTINIB HYDROCHLORIDE [Suspect]
     Indication: NON-SMALL CELL LUNG CANCER
     Dosage: (150 MG, QD15-28), ORAL
     Route: 048
     Dates: start: 20100622
  2. GEMCITABINE [Suspect]
     Indication: NON-SMALL CELL LUNG CANCER
     Dosage: (2100 MG, DAYS 1 AND 8), INTRAVENOUS
     Route: 042
     Dates: start: 20100607
  3. ASPIRIN [Concomitant]
  4. SIMVASTATIN [Concomitant]
  5. IRBESARTAN [Concomitant]
  6. LEVOTHYROXINE SODIUM [Concomitant]
  7. PANTOPRAZOLE SODIUM [Concomitant]
  8. AMITRIPTYLINE (AMITRYPTYLINE) [Concomitant]
  9. HYDROXOCOBALAMIN (HYDROXOCOBALAMIN) [Concomitant]
  10. SYMBICORT (SYMBICORT) [Concomitant]
  11. SALBUTAMOL (SALBUTAMOL) [Concomitant]

REACTIONS (7)
  - BLOOD PRESSURE DIASTOLIC INCREASED [None]
  - HAEMOGLOBIN DECREASED [None]
  - INFECTION [None]
  - PLATELET COUNT ABNORMAL [None]
  - PLEURAL EFFUSION [None]
  - PULMONARY EMBOLISM [None]
  - RESPIRATORY FAILURE [None]
